FAERS Safety Report 13978875 (Version 1)
Quarter: 2017Q3

REPORT INFORMATION
  Report Type: Spontaneous
  Country: FR (occurrence: FR)
  Receive Date: 20170915
  Receipt Date: 20170915
  Transmission Date: 20171128
  Serious: Yes (Other)
  Sender: FDA-Public Use
  Company Number: FR-MERCK KGAA-2026493

PATIENT
  Age: 55 Year
  Sex: Female

DRUGS (5)
  1. LEVOTHYROX 25 [Suspect]
     Active Substance: LEVOTHYROXINE SODIUM
  2. LITHIUM. [Concomitant]
     Active Substance: LITHIUM
  3. NOVOTHYROX [Suspect]
     Active Substance: LEVOTHYROXINE SODIUM
     Indication: POST PROCEDURAL HYPOTHYROIDISM
     Dates: start: 201702
  4. LEVOTHYROX 75 NF [Suspect]
     Active Substance: LEVOTHYROXINE SODIUM
  5. LEVOTHYROX 25 NF [Suspect]
     Active Substance: LEVOTHYROXINE SODIUM

REACTIONS (4)
  - Weight increased [Unknown]
  - Insomnia [Unknown]
  - Depressed mood [Unknown]
  - Homicidal ideation [Unknown]

NARRATIVE: CASE EVENT DATE: 2017
